FAERS Safety Report 6743957-6 (Version None)
Quarter: 2010Q2

REPORT INFORMATION
  Report Type: 
  Country: None (occurrence: None)
  Receive Date: 20100527
  Receipt Date: 20100520
  Transmission Date: 20101027
  Serious: Yes (Hospitalization)
  Sender: FDA-Public Use
  Company Number: PHHO2010DE06622

PATIENT
  Sex: Male

DRUGS (2)
  1. CERTICAN [Suspect]
     Indication: LIVER TRANSPLANT
     Dosage: 1 MG, BID
     Route: 048
     Dates: start: 20091030, end: 20100324
  2. TACROLIMUS [Suspect]
     Indication: LIVER TRANSPLANT
     Dosage: 2.5MG/DAY
     Route: 048
     Dates: start: 20091030

REACTIONS (6)
  - BLOOD BILIRUBIN INCREASED [None]
  - COMPLICATIONS OF TRANSPLANTED LIVER [None]
  - DRUG INEFFECTIVE [None]
  - HEPATIC ARTERY STENOSIS [None]
  - LIVER TRANSPLANT REJECTION [None]
  - TRANSAMINASES INCREASED [None]
